FAERS Safety Report 17636415 (Version 1)
Quarter: 2020Q2

REPORT INFORMATION
  Report Type: Spontaneous
  Country: US (occurrence: US)
  Receive Date: 20200407
  Receipt Date: 20200407
  Transmission Date: 20200713
  Serious: Yes (Other)
  Sender: FDA-Public Use
  Company Number: US-ABBVIE-20K-163-3342705-00

PATIENT
  Age: 18 Year
  Sex: Female

DRUGS (1)
  1. ORILISSA [Suspect]
     Active Substance: ELAGOLIX SODIUM
     Indication: PRODUCT USED FOR UNKNOWN INDICATION
     Route: 048
     Dates: start: 20200221, end: 20200324

REACTIONS (6)
  - Headache [Unknown]
  - Loss of consciousness [Unknown]
  - Asthenia [Unknown]
  - Fall [Unknown]
  - Adverse event [Unknown]
  - Blindness transient [Unknown]

NARRATIVE: CASE EVENT DATE: 2020
